FAERS Safety Report 26183892 (Version 1)
Quarter: 2025Q4

REPORT INFORMATION
  Report Type: Spontaneous
  Country: CN (occurrence: CN)
  Receive Date: 20251222
  Receipt Date: 20251222
  Transmission Date: 20260117
  Serious: Yes (Other)
  Sender: BAXTER
  Company Number: None

PATIENT
  Age: 55 Year
  Sex: Male
  Weight: 69.5 kg

DRUGS (3)
  1. CYCLOPHOSPHAMIDE [Suspect]
     Active Substance: CYCLOPHOSPHAMIDE
     Indication: Glomerulonephritis membranous
     Dosage: 0.4 G, QD
     Route: 041
     Dates: start: 20251014, end: 20251015
  2. CYCLOPHOSPHAMIDE [Suspect]
     Active Substance: CYCLOPHOSPHAMIDE
     Indication: Nephrotic syndrome
  3. SODIUM CHLORIDE [Suspect]
     Active Substance: SODIUM CHLORIDE
     Dosage: 250 ML, QD
     Route: 041
     Dates: start: 20251014, end: 20251015

REACTIONS (5)
  - Cystitis haemorrhagic [Unknown]
  - Haematuria [Recovered/Resolved]
  - Chromaturia [Recovering/Resolving]
  - Red blood cells urine positive [Recovering/Resolving]
  - Urinary tract toxicity [Unknown]

NARRATIVE: CASE EVENT DATE: 20251018
